FAERS Safety Report 24556942 (Version 1)
Quarter: 2024Q4

REPORT INFORMATION
  Report Type: Spontaneous
  Country: US (occurrence: US)
  Receive Date: 20241028
  Receipt Date: 20241028
  Transmission Date: 20250115
  Serious: Yes (Other)
  Sender: CSL BEHRING
  Company Number: US-BEH-2024182604

PATIENT
  Age: 33 Year
  Sex: Female

DRUGS (3)
  1. HUMATE-P [Suspect]
     Active Substance: HUMAN COAGULATION FACTOR VIII/VON WILLEBRAND FACTOR COMPLEX
     Indication: Von Willebrand^s disease
     Dosage: 4000 RCOF UNITS (3600-4400) (STRENGTH: 2400)
     Route: 042
     Dates: start: 202110
  2. HUMATE-P [Suspect]
     Active Substance: HUMAN COAGULATION FACTOR VIII/VON WILLEBRAND FACTOR COMPLEX
     Dosage: 2500 RCOF UNITS (2250-2750) SLOW IV PUSH POST OP ON DAYS 1, 3, AND 5 (STRENGTH: 600)
     Route: 042
     Dates: start: 202110
  3. AMICAR [Concomitant]
     Active Substance: AMINOCAPROIC ACID

REACTIONS (3)
  - Post procedural haemorrhage [Unknown]
  - Tooth extraction [Unknown]
  - Alveolar osteitis [Unknown]

NARRATIVE: CASE EVENT DATE: 20241001
